FAERS Safety Report 5990751-X (Version None)
Quarter: 2008Q4

REPORT INFORMATION
  Report Type: 
  Country: None (occurrence: None)
  Receive Date: 20081211
  Receipt Date: 20081208
  Transmission Date: 20090506
  Serious: Yes (Life-Threatening, Hospitalization, Other)
  Sender: FDA-Public Use
  Company Number: DE-BAYER-200830487GPV

PATIENT
  Sex: Female
  Weight: 55 kg

DRUGS (5)
  1. AVELOX [Suspect]
     Indication: LOBAR PNEUMONIA
     Dosage: TOTAL DAILY DOSE: 400 MG  UNIT DOSE: 400 MG
     Route: 048
     Dates: start: 20080802, end: 20080803
  2. BROMAZEPAM [Concomitant]
     Indication: DRUG USE FOR UNKNOWN INDICATION
     Dosage: TOTAL DAILY DOSE: 1.5 MG
     Route: 048
     Dates: start: 20080801
  3. DECORTIN H [Concomitant]
     Indication: DRUG USE FOR UNKNOWN INDICATION
     Dosage: TOTAL DAILY DOSE: 5 MG  UNIT DOSE: 5 MG
     Route: 065
     Dates: start: 20080801
  4. LEPONEX [Concomitant]
     Indication: DRUG USE FOR UNKNOWN INDICATION
     Dosage: AS USED: 25/50 MG
     Route: 048
     Dates: start: 20080801
  5. MADOPAR [Concomitant]
     Indication: DRUG USE FOR UNKNOWN INDICATION
     Route: 048
     Dates: start: 20080801

REACTIONS (4)
  - DRUG ERUPTION [None]
  - HYPERTHERMIA [None]
  - OEDEMA PERIPHERAL [None]
  - RASH GENERALISED [None]
